FAERS Safety Report 12982678 (Version 1)
Quarter: 2016Q4

REPORT INFORMATION
  Report Type: Spontaneous
  Country: US (occurrence: US)
  Receive Date: 20161129
  Receipt Date: 20161129
  Transmission Date: 20170207
  Serious: Yes (Death, Hospitalization, Other)
  Sender: FDA-Public Use
  Company Number: US-GLAXOSMITHKLINE-US2016174318

PATIENT
  Age: 74 Year
  Sex: Male

DRUGS (6)
  1. ASPIRIN. [Concomitant]
     Active Substance: ASPIRIN
  2. COREG [Concomitant]
     Active Substance: CARVEDILOL
  3. DIGOXIN. [Concomitant]
     Active Substance: DIGOXIN
  4. LOVASTATIN. [Concomitant]
     Active Substance: LOVASTATIN
  5. ADVAIR DISKUS [Suspect]
     Active Substance: FLUTICASONE PROPIONATE\SALMETEROL XINAFOATE
     Indication: CHRONIC OBSTRUCTIVE PULMONARY DISEASE
     Dosage: UNK UNK, BID
     Route: 055
  6. SPIRIVA [Concomitant]
     Active Substance: TIOTROPIUM BROMIDE MONOHYDRATE

REACTIONS (6)
  - Cholelithiasis [Fatal]
  - Cardiac arrest [Fatal]
  - Feeding disorder [Unknown]
  - Pneumonia [Recovering/Resolving]
  - Blood pressure decreased [Unknown]
  - Nausea [Unknown]

NARRATIVE: CASE EVENT DATE: 20160329
